FAERS Safety Report 10248013 (Version 1)
Quarter: 2014Q2

REPORT INFORMATION
  Report Type: Report from Study
  Country: DE (occurrence: DE)
  Receive Date: 20140619
  Receipt Date: 20140619
  Transmission Date: 20141212
  Serious: No
  Sender: FDA-Public Use
  Company Number: PHHY2014DE075837

PATIENT
  Sex: Female

DRUGS (13)
  1. AMN107 [Suspect]
     Indication: CHRONIC MYELOID LEUKAEMIA
     Dosage: 600 MG, UNK
     Dates: start: 20130703, end: 20130911
  2. AMN107 [Suspect]
     Dosage: 450 MG, UNK
     Dates: start: 20130919, end: 20131202
  3. AMN107 [Suspect]
     Dosage: 600 MG, UNK
     Dates: start: 20131203
  4. RAMILICH [Concomitant]
     Dosage: 15 MG, UNK
     Dates: start: 20120810
  5. NITREDIPINO [Concomitant]
     Dosage: 20 MG, UNK
     Dates: start: 20120810
  6. CLOPIDOGREL [Concomitant]
     Dosage: 75 MG, UNK
     Dates: start: 20110502
  7. ASS [Concomitant]
     Dosage: 100 MG, UNK
     Dates: start: 20110502
  8. ATORVASTATIN [Concomitant]
     Dosage: 40 MG, UNK
     Dates: start: 20130208
  9. CALCIMAGON D3 [Concomitant]
     Dosage: 500 MG, UNK
  10. NOVAMINSULFON [Concomitant]
     Dosage: 1000 MG, UNK
     Dates: start: 20130910
  11. TEPILTA [Concomitant]
     Dosage: 4 DF, UNK
     Dates: start: 20130910
  12. TEVANATE [Concomitant]
     Dosage: 10 MG, UNK
     Dates: start: 20131016
  13. MOVICOL [Concomitant]
     Dosage: 2 DF, UNK
     Dates: start: 20140115

REACTIONS (1)
  - Constipation [Not Recovered/Not Resolved]
